FAERS Safety Report 5505827-0 (Version None)
Quarter: 2007Q4

REPORT INFORMATION
  Report Type: 
  Country: None (occurrence: None)
  Receive Date: 20071102
  Receipt Date: 20071023
  Transmission Date: 20080405
  Serious: Yes (Hospitalization, Other)
  Sender: FDA-Public Use
  Company Number: US-PFIZER INC-2007089575

PATIENT
  Sex: Male
  Weight: 92.727 kg

DRUGS (8)
  1. LIPITOR [Suspect]
  2. METHOTREXATE [Suspect]
     Indication: PSORIATIC ARTHROPATHY
  3. MONOPRIL [Concomitant]
  4. HYTRIN [Concomitant]
  5. TENORMIN [Concomitant]
  6. FOLIC ACID [Concomitant]
  7. ALLOPURINOL [Concomitant]
  8. ASPIRIN 10GR TIMED DISINTEGRATION TAB [Concomitant]

REACTIONS (3)
  - ACUTE HEPATIC FAILURE [None]
  - APPARENT LIFE THREATENING EVENT [None]
  - RENAL FAILURE [None]
